FAERS Safety Report 15459282 (Version 2)
Quarter: 2019Q1

REPORT INFORMATION
  Report Type: Other
  Country: CA (occurrence: CA)
  Receive Date: 20181003
  Receipt Date: 20190121
  Transmission Date: 20190417
  Serious: Yes (Other)
  Sender: FDA-Public Use
  Company Number: CA-CELLTRION INC.-2018CA022848

PATIENT

DRUGS (11)
  1. INFLIXIMAB PFIZER (UNKNOWN) [Suspect]
     Active Substance: INFLIXIMAB
     Indication: COLITIS ULCERATIVE
     Dosage: UNK
     Route: 042
     Dates: start: 201401, end: 20150525
  2. PREDNISONE. [Concomitant]
     Active Substance: PREDNISONE
     Indication: PROPHYLAXIS
     Dosage: UNK
  3. SALOFALK [MESALAZINE] [Concomitant]
     Dosage: UNK, QD
  4. SULFATRIM [SULFAMETHOXAZOLE;TRIMETHOPRIM] [Concomitant]
     Indication: LUNG INFECTION
     Dosage: 800 MG, ONCE A DAY
  5. ENTYVIO [Suspect]
     Active Substance: VEDOLIZUMAB
     Indication: COLITIS ULCERATIVE
     Dosage: 300 MG, EVERY 4 WEEKS
     Route: 042
     Dates: start: 20150702
  6. ENTYVIO [Suspect]
     Active Substance: VEDOLIZUMAB
     Indication: COLITIS ULCERATIVE
     Dosage: RE-INDUCTION DOSE ENTYVO: 3 LOADING DOSES
     Route: 042
     Dates: start: 20180123
  7. ENTYVIO [Suspect]
     Active Substance: VEDOLIZUMAB
     Dosage: 300 MG EVERY 4 WEEKS
     Route: 042
     Dates: start: 20180501, end: 20180501
  8. ENTYVIO [Suspect]
     Active Substance: VEDOLIZUMAB
     Dosage: 300 MG EVERY 4 WEEKS
     Dates: start: 20180605, end: 20180605
  9. PROLIA [Concomitant]
     Active Substance: DENOSUMAB
     Indication: BONE DISORDER
     Dosage: UNK
     Route: 058
  10. SULFATRIM [SULFAMETHOXAZOLE;TRIMETHOPRIM] [Concomitant]
     Dosage: 400 MG
  11. METHOTREXATE. [Concomitant]
     Active Substance: METHOTREXATE
     Dosage: 1 WEEKLY

REACTIONS (4)
  - Drug ineffective [Not Recovered/Not Resolved]
  - Condition aggravated [Not Recovered/Not Resolved]
  - Faecal calprotectin increased [Not Recovered/Not Resolved]
  - Colitis ulcerative [Not Recovered/Not Resolved]

NARRATIVE: CASE EVENT DATE: 201509
